FAERS Safety Report 4864524-5 (Version None)
Quarter: 2005Q4

REPORT INFORMATION
  Report Type: 
  Country: None (occurrence: None)
  Receive Date: 20051222
  Receipt Date: 20051122
  Transmission Date: 20060501
  Serious: Yes (Other)
  Sender: FDA-Public Use
  Company Number: IT-ROCHE-426078

PATIENT
  Age: 44 Year
  Sex: Male

DRUGS (1)
  1. LARIAM [Suspect]
     Indication: PROPHYLAXIS
     Route: 048
     Dates: start: 20050720, end: 20050919

REACTIONS (1)
  - HEPATITIS ACUTE [None]
